FAERS Safety Report 7102884-5 (Version None)
Quarter: 2010Q4

REPORT INFORMATION
  Report Type: 
  Country: None (occurrence: None)
  Receive Date: 20101108
  Receipt Date: 20101011
  Transmission Date: 20110411
  Serious: Yes (Hospitalization)
  Sender: FDA-Public Use
  Company Number: DE-021315

PATIENT
  Age: 86 Year
  Sex: Female

DRUGS (1)
  1. CHLORAMBUCIL(UNKNOWN) [Suspect]
     Indication: CHRONIC LYMPHOCYTIC LEUKAEMIA
     Dosage: (10 MG/M2) ORAL
     Route: 048
     Dates: start: 20100210

REACTIONS (1)
  - DIARRHOEA [None]
